FAERS Safety Report 7369195-4 (Version None)
Quarter: 2011Q1

REPORT INFORMATION
  Report Type: 
  Country: None (occurrence: None)
  Receive Date: 20110323
  Receipt Date: 20110314
  Transmission Date: 20110831
  Serious: Yes (Other)
  Sender: FDA-Public Use
  Company Number: US-ROCHE-762491

PATIENT
  Sex: Female

DRUGS (2)
  1. TAMIFLU [Suspect]
     Indication: INFLUENZA
     Route: 048
     Dates: start: 20110218, end: 20110220
  2. ALEVE [Concomitant]
     Indication: PAIN
     Route: 048
     Dates: start: 20110217

REACTIONS (7)
  - HALLUCINATIONS, MIXED [None]
  - VOMITING [None]
  - DEMENTIA [None]
  - DEPRESSED MOOD [None]
  - DELIRIUM [None]
  - NAUSEA [None]
  - GAIT DISTURBANCE [None]
